FAERS Safety Report 6370052-0 (Version None)
Quarter: 2009Q3

REPORT INFORMATION
  Report Type: 
  Country: None (occurrence: None)
  Receive Date: 20090923
  Receipt Date: 20071107
  Transmission Date: 20100115
  Serious: Yes (Other)
  Sender: FDA-Public Use
  Company Number: US-ASTRAZENECA-2006UW21305

PATIENT
  Age: 16280 Day
  Sex: Female
  Weight: 36.3 kg

DRUGS (5)
  1. SEROQUEL [Suspect]
     Indication: DEPRESSION
     Route: 048
     Dates: start: 20031028, end: 20040713
  2. SEROQUEL [Suspect]
     Indication: ANXIETY
     Route: 048
     Dates: start: 20031028, end: 20040713
  3. CLORAPIN [Concomitant]
     Dates: start: 20040101
  4. VICODIN [Concomitant]
     Indication: PAIN
     Dosage: 1 TAB EVERY 4-6 HOURS
     Route: 048
  5. ALPRAZOLAM [Concomitant]
     Route: 048

REACTIONS (4)
  - ABDOMINAL PAIN [None]
  - BLOOD CHOLESTEROL INCREASED [None]
  - PAIN [None]
  - PANCREATITIS [None]
